FAERS Safety Report 22202801 (Version 2)
Quarter: 2023Q2

REPORT INFORMATION
  Report Type: Spontaneous
  Country: DE (occurrence: DE)
  Receive Date: 20230412
  Receipt Date: 20230418
  Transmission Date: 20230722
  Serious: Yes (Other)
  Sender: FDA-Public Use
  Company Number: DE-BIOVITRUM-2023-DE-008704

PATIENT
  Sex: Female

DRUGS (1)
  1. AVATROMBOPAG [Suspect]
     Active Substance: AVATROMBOPAG
     Indication: Immune thrombocytopenia
     Dosage: ANTICOAGULATION, NOT FURTHER SPECIFIED
     Route: 048

REACTIONS (2)
  - Portal vein thrombosis [Unknown]
  - Splenectomy [Unknown]

NARRATIVE: CASE EVENT DATE: 20221201
